FAERS Safety Report 7346142-2 (Version None)
Quarter: 2011Q1

REPORT INFORMATION
  Report Type: 
  Country: None (occurrence: None)
  Receive Date: 20110311
  Receipt Date: 20100805
  Transmission Date: 20110831
  Serious: Yes (Hospitalization, Other)
  Sender: FDA-Public Use
  Company Number: US-BAYER-201014955NA

PATIENT
  Sex: Female
  Weight: 145 kg

DRUGS (17)
  1. MOTRIN [Concomitant]
  2. BENICAR HCT [Concomitant]
     Dosage: 20/12.5 MG
     Route: 048
  3. XOPENEX [Concomitant]
  4. PERCOCET [Concomitant]
     Indication: PAIN MANAGEMENT
  5. NORVASC [Concomitant]
     Dosage: 5 MG PER DAY
     Route: 048
  6. AMBIEN [Concomitant]
     Dosage: 5MG/DAILY
     Route: 048
  7. CYMBALTA [Concomitant]
     Dosage: 30 MG, QD
     Route: 048
  8. CIMETIDINE [Concomitant]
     Dosage: 400MG
     Route: 048
  9. DUONEB [Concomitant]
  10. NEXIUM [Concomitant]
     Dosage: EVERY MORNING, QD
     Route: 048
  11. YAZ [Suspect]
     Indication: VAGINAL HAEMORRHAGE
     Dosage: 1 TAB/DAY
     Route: 048
     Dates: start: 20070326, end: 20080228
  12. THYROID TAB [Concomitant]
     Dosage: 60MG, QD
     Route: 048
  13. DARVOCET-N 100 [Concomitant]
     Dosage: 3 TIMES PER DAY
     Route: 048
  14. ADVAIR DISKUS 100/50 [Concomitant]
     Dosage: 500/50
     Route: 055
  15. POTASSIUM CHLORIDE [Concomitant]
     Dosage: 10MEQ 1-2 DAILY
     Route: 048
  16. LEXAPRO [Concomitant]
     Dosage: 10MG/DAILY
     Route: 048
  17. METFORMIN [Concomitant]
     Dosage: 500 MG, QD
     Route: 048

REACTIONS (2)
  - PULMONARY EMBOLISM [None]
  - DEEP VEIN THROMBOSIS [None]
